FAERS Safety Report 13678910 (Version 1)
Quarter: 2017Q2

REPORT INFORMATION
  Report Type: Report from Study
  Country: FR (occurrence: FR)
  Receive Date: 20170622
  Receipt Date: 20170622
  Transmission Date: 20170830
  Serious: Yes (Hospitalization, Other)
  Sender: FDA-Public Use
  Company Number: FR-GILEAD-2017-0279078

PATIENT
  Age: 1 Day
  Sex: Male

DRUGS (3)
  1. ZYMAD [Concomitant]
     Active Substance: CHOLECALCIFEROL
     Indication: NUTRITIONAL SUPPLEMENTATION
     Dosage: 3 GTT, QD
     Route: 048
     Dates: start: 20170426
  2. UVEDOSE [Concomitant]
     Active Substance: CHOLECALCIFEROL
     Route: 064
  3. TENOFOVIR DISOPROXIL FUMARATE. [Suspect]
     Active Substance: TENOFOVIR DISOPROXIL FUMARATE
     Indication: HEPATITIS B
     Dosage: UNK
     Route: 064
     Dates: start: 20160824, end: 20170426

REACTIONS (3)
  - Foetal exposure during pregnancy [Recovered/Resolved]
  - Respiratory distress [Unknown]
  - Milk allergy [Unknown]

NARRATIVE: CASE EVENT DATE: 20160824
